FAERS Safety Report 7984463-0 (Version None)
Quarter: 2011Q4

REPORT INFORMATION
  Report Type: 
  Country: None (occurrence: None)
  Receive Date: 20111214
  Receipt Date: 20111130
  Transmission Date: 20120403
  Serious: Yes (Hospitalization, Other)
  Sender: FDA-Public Use
  Company Number: EU-2011-10214

PATIENT
  Age: 58 Year
  Sex: Female

DRUGS (8)
  1. DEXAMETHASONE [Concomitant]
  2. GABAPENTIN [Concomitant]
  3. ATORVASTATIN [Concomitant]
  4. INFUMORPH [Concomitant]
  5. SAMSCA [Suspect]
     Indication: HYPONATRAEMIA
     Dosage: 15 MG MILLIGRAM(S), DAILY, DOSE, ORAL; 7.5 MG MILLIGRAM(S), DAILY DOSE, ORAL
     Route: 048
     Dates: start: 20110101, end: 20111001
  6. SAMSCA [Suspect]
     Indication: HYPONATRAEMIA
     Dosage: 15 MG MILLIGRAM(S), DAILY, DOSE, ORAL; 7.5 MG MILLIGRAM(S), DAILY DOSE, ORAL
     Route: 048
     Dates: start: 20111001, end: 20110101
  7. RANITIDINE HYDROCHLORIDE [Concomitant]
  8. QUINAPRIL HCL [Concomitant]

REACTIONS (4)
  - RAPID CORRECTION OF HYPONATRAEMIA [None]
  - WRONG TECHNIQUE IN DRUG USAGE PROCESS [None]
  - HYPERNATRAEMIA [None]
  - PNEUMONIA [None]
